FAERS Safety Report 4304530-2 (Version None)
Quarter: 2004Q1

REPORT INFORMATION
  Report Type: 
  Country: None (occurrence: None)
  Receive Date: 20040224
  Receipt Date: 20040211
  Transmission Date: 20041129
  Serious: No
  Sender: FDA-Public Use
  Company Number: 04H-062-0250098-00

PATIENT

DRUGS (4)
  1. LEUCOVORIN CALCIUM [Suspect]
     Indication: CHEMOTHERAPY
     Dosage: 500 MG/M2, INFUSION, WKLY FOR 6 WKS, THEN 1 WK REST, INTRAVENOUS
     Route: 042
  2. FLUOROURACIL [Suspect]
     Dosage: 2600 MG/M2, INFUSION, WKLY FOR 6 WKS, THEN 1 WK REST, INTRAVENOUS
     Route: 042
  3. MITOMYCIN [Suspect]
     Dosage: DOSES OF 6, 8, 10 MG/M2 ON DAYS 1 AND 22, INTRAVENOUS BOLUS
     Route: 040
  4. PREDNISOLONE [Concomitant]

REACTIONS (1)
  - NEUTROPENIC INFECTION [None]
